FAERS Safety Report 9284603 (Version 2)
Quarter: 2013Q3

REPORT INFORMATION
  Report Type: Spontaneous
  Country: US (occurrence: US)
  Receive Date: 20130513
  Receipt Date: 20130701
  Transmission Date: 20140515
  Serious: Yes (Hospitalization)
  Sender: FDA-Public Use
  Company Number: US-B.I. PHARMACEUTICALS,INC./RIDGEFIELD-2013-BI-12263BP

PATIENT
  Age: 64 Year
  Sex: Male
  Weight: 134 kg

DRUGS (13)
  1. SPIRIVA [Suspect]
     Indication: CHRONIC OBSTRUCTIVE PULMONARY DISEASE
     Dosage: 18 MCG
     Route: 055
     Dates: start: 201211
  2. ASPIRIN [Concomitant]
     Indication: CARDIAC DISORDER
     Dosage: 325 MG
     Route: 048
     Dates: start: 201303
  3. PANTOPRAZOLE [Concomitant]
     Indication: GASTROOESOPHAGEAL REFLUX DISEASE
     Dosage: 40 MG
     Route: 048
     Dates: start: 2011
  4. RENA- VITE [Concomitant]
     Indication: DIALYSIS
     Dosage: 1 ANZ
     Route: 048
     Dates: start: 2011
  5. CALCIUM [Concomitant]
     Indication: DIALYSIS
     Dosage: 6000 MG
     Route: 048
     Dates: start: 2011
  6. LORAZEPAM [Concomitant]
     Indication: SLEEP DISORDER
     Dosage: 1 MG
     Route: 048
     Dates: start: 2011
  7. GLIPIZIDE [Concomitant]
     Indication: DIABETES MELLITUS
     Dosage: 1 ANZ
     Route: 048
     Dates: start: 2012
  8. FUROSEMIDE [Concomitant]
     Indication: CARDIAC FAILURE CONGESTIVE
     Dosage: 80 MG
     Route: 048
     Dates: start: 2011
  9. DOCUSATE SODIUM [Concomitant]
     Indication: CONSTIPATION
     Dosage: 100 MG
     Route: 048
     Dates: start: 2011
  10. METOPROLOL [Concomitant]
     Indication: CARDIAC DISORDER
     Dosage: 50 MG
     Route: 048
     Dates: start: 2011
  11. ATORVASTATIN [Concomitant]
     Indication: BLOOD CHOLESTEROL INCREASED
     Dosage: 1 ANZ
     Route: 048
     Dates: start: 2011
  12. HYDROCODONE-APAP [Concomitant]
     Indication: PAIN
     Route: 048
     Dates: start: 2011
  13. ERYTHROPOIETIN [Concomitant]
     Indication: DIALYSIS
     Route: 030
     Dates: start: 2011

REACTIONS (6)
  - Arrhythmia [Unknown]
  - Convulsion [Recovered/Resolved]
  - Coma [Recovered/Resolved]
  - Dyspnoea [Not Recovered/Not Resolved]
  - Graft infection [Not Recovered/Not Resolved]
  - Device malfunction [Unknown]
